FAERS Safety Report 4332838-3 (Version None)
Quarter: 2004Q2

REPORT INFORMATION
  Report Type: 
  Country: None (occurrence: None)
  Receive Date: 20040405
  Receipt Date: 20040405
  Transmission Date: 20050107
  Serious: Yes (Hospitalization)
  Sender: FDA-Public Use
  Company Number: None

PATIENT
  Age: 57 Year
  Sex: Male
  Weight: 118.6 kg

DRUGS (7)
  1. LITHIUM [Suspect]
     Dosage: 300 MG TID BY MOUTH
     Route: 048
     Dates: start: 20030609, end: 20031005
  2. DILTIAZEM (TIAZAC) [Concomitant]
  3. PROPANOLOL HCL [Concomitant]
  4. FOLIC ACID [Concomitant]
  5. TOPIRMATE [Concomitant]
  6. GLYBURIDE [Concomitant]
  7. LISINOPRIL [Concomitant]

REACTIONS (5)
  - CONFUSIONAL STATE [None]
  - DISORIENTATION [None]
  - HYPOTENSION [None]
  - LETHARGY [None]
  - TREMOR [None]
